FAERS Safety Report 6913409-9 (Version None)
Quarter: 2010Q3

REPORT INFORMATION
  Report Type: 
  Country: None (occurrence: None)
  Receive Date: 20100809
  Receipt Date: 20100726
  Transmission Date: 20110219
  Serious: Yes (Hospitalization)
  Sender: FDA-Public Use
  Company Number: US-ELI_LILLY_AND_COMPANY-US201007002509

PATIENT
  Sex: Female

DRUGS (8)
  1. FORTEO [Suspect]
     Indication: OSTEOPOROSIS
     Dosage: 20 UG, DAILY (1/D)
  2. FORTEO [Suspect]
     Dosage: 20 UG, QOD
  3. VERAPAMIL [Concomitant]
  4. BENZONATATE [Concomitant]
  5. VITAMIN D [Concomitant]
  6. ADVAIR DISKUS 100/50 [Concomitant]
  7. SPIRIVA [Concomitant]
  8. HYDROCODONE BITARTRATE [Concomitant]

REACTIONS (23)
  - ARRHYTHMIA [None]
  - BONE PAIN [None]
  - COUGH [None]
  - DIZZINESS [None]
  - DYSPNOEA [None]
  - HYPERTENSION [None]
  - INJECTION SITE ERYTHEMA [None]
  - INJECTION SITE HAEMATOMA [None]
  - INJECTION SITE HAEMORRHAGE [None]
  - INJECTION SITE STREAKING [None]
  - INTENTIONAL DRUG MISUSE [None]
  - LOWER RESPIRATORY TRACT INFECTION [None]
  - LUNG INFECTION [None]
  - MALAISE [None]
  - NAUSEA [None]
  - OBSTRUCTIVE AIRWAYS DISORDER [None]
  - PALPITATIONS [None]
  - PULMONARY CONGESTION [None]
  - RESTLESSNESS [None]
  - SINUS CONGESTION [None]
  - SINUSITIS [None]
  - SLEEP DISORDER DUE TO GENERAL MEDICAL CONDITION, INSOMNIA TYPE [None]
  - UPPER RESPIRATORY TRACT INFECTION [None]
